FAERS Safety Report 8840218 (Version 1)
Quarter: 2012Q4

REPORT INFORMATION
  Report Type: 
  Country: SE (occurrence: SE)
  Receive Date: 20121015
  Receipt Date: 20121015
  Transmission Date: 20130627
  Serious: Yes (Hospitalization)
  Sender: FDA-Public Use
  Company Number: SE-009507513-1210SWE004931

PATIENT
  Age: 78 Year
  Sex: Male

DRUGS (6)
  1. COZAAR [Suspect]
     Indication: HYPERTENSION
     Dosage: UNK
     Route: 048
     Dates: end: 201207
  2. FLUNITRAZEPAM [Suspect]
     Dosage: UNK
     Dates: end: 201207
  3. METOPROLOL [Concomitant]
  4. SIMVASTATIN [Concomitant]
  5. SALURES [Concomitant]
  6. WARAN [Concomitant]
     Dosage: UNK
     Route: 048

REACTIONS (5)
  - Decreased appetite [Recovered/Resolved]
  - Fatigue [Recovered/Resolved]
  - Gait disturbance [Recovered/Resolved]
  - Dizziness [Recovered/Resolved]
  - Confusional state [Recovered/Resolved]
